FAERS Safety Report 10433473 (Version 4)
Quarter: 2014Q4

REPORT INFORMATION
  Report Type: Spontaneous
  Country: US (occurrence: US)
  Receive Date: 20140905
  Receipt Date: 20141205
  Transmission Date: 20150528
  Serious: No
  Sender: FDA-Public Use
  Company Number: US-PFIZER INC-2014247231

PATIENT
  Sex: Male

DRUGS (1)
  1. CELEBREX [Suspect]
     Active Substance: CELECOXIB
     Dosage: UNK, 1X/DAY

REACTIONS (3)
  - Tooth extraction [Recovered/Resolved]
  - Oral disorder [Recovered/Resolved]
  - Tooth socket haemorrhage [Recovered/Resolved]
